FAERS Safety Report 16552542 (Version 3)
Quarter: 2020Q3

REPORT INFORMATION
  Report Type: Spontaneous
  Country: US (occurrence: US)
  Receive Date: 20190710
  Receipt Date: 20200811
  Transmission Date: 20201102
  Serious: No
  Sender: FDA-Public Use
  Company Number: US-PFIZER INC-2018518556

PATIENT
  Age: 67 Year
  Sex: Female
  Weight: 62.6 kg

DRUGS (2)
  1. IBRANCE [Suspect]
     Active Substance: PALBOCICLIB
     Indication: BREAST CANCER METASTATIC
     Dosage: 125 MG, UNK (ONCE A DAY 21 DAYS ON AND 7 OFF)
     Route: 048
     Dates: start: 2018
  2. IBRANCE [Suspect]
     Active Substance: PALBOCICLIB
     Dosage: 100 MG, CYCLIC (ONCE DAILY FOR 21 DAYS, 7 DAYS OFF)

REACTIONS (4)
  - Intentional dose omission [Unknown]
  - Full blood count decreased [Recovered/Resolved]
  - Body height decreased [Unknown]
  - Lethargy [Unknown]

NARRATIVE: CASE EVENT DATE: 201907
